FAERS Safety Report 25488525 (Version 1)
Quarter: 2025Q2

REPORT INFORMATION
  Report Type: Report from Study
  Country: IT (occurrence: IT)
  Receive Date: 20250627
  Receipt Date: 20250627
  Transmission Date: 20250717
  Serious: Yes (Hospitalization)
  Sender: SK LIFE SCIENCE
  Company Number: IT-ACRAF-2025-038279

PATIENT

DRUGS (4)
  1. XCOPRI [Suspect]
     Active Substance: CENOBAMATE
     Indication: Temporal lobe epilepsy
     Route: 065
     Dates: start: 20240116, end: 20240502
  2. BRIVARACETAM [Concomitant]
     Active Substance: BRIVARACETAM
     Indication: Temporal lobe epilepsy
     Route: 065
     Dates: start: 20240502
  3. CLOBAZAM [Concomitant]
     Active Substance: CLOBAZAM
     Indication: Temporal lobe epilepsy
     Route: 065
     Dates: start: 20240502
  4. OLANZAPINE [Concomitant]
     Active Substance: OLANZAPINE
     Indication: Temporal lobe epilepsy
     Route: 065
     Dates: start: 20240502

REACTIONS (2)
  - Overdose [Recovered/Resolved]
  - Dizziness [Recovered/Resolved]

NARRATIVE: CASE EVENT DATE: 20240505
